FAERS Safety Report 6075349-X (Version None)
Quarter: 2009Q1

REPORT INFORMATION
  Report Type: 
  Country: None (occurrence: None)
  Receive Date: 20090121
  Receipt Date: 20080215
  Transmission Date: 20090719
  Serious: Yes (Other)
  Sender: FDA-Public Use
  Company Number: US-WYE-H02712708

PATIENT

DRUGS (3)
  1. PREMPRO [Suspect]
  2. PREMARIN [Suspect]
  3. PROVERA [Suspect]

REACTIONS (5)
  - DEPRESSION [None]
  - DIVERTICULUM [None]
  - DRUG INEFFECTIVE [None]
  - HYPERTENSION [None]
  - THROMBOSIS [None]
